FAERS Safety Report 10379216 (Version 1)
Quarter: 2014Q3

REPORT INFORMATION
  Report Type: Spontaneous
  Country: TW (occurrence: None)
  Receive Date: 20140808
  Receipt Date: 20140808
  Transmission Date: 20150326
  Serious: Yes (Death, Hospitalization)
  Sender: FDA-Public Use
  Company Number: 2014COV00080

PATIENT
  Age: 61 Year
  Sex: Male

DRUGS (1)
  1. KAYEXALATE [Suspect]
     Active Substance: SODIUM POLYSTYRENE SULFONATE

REACTIONS (5)
  - Bronchopneumonia [None]
  - Asthenia [None]
  - Respiratory failure [None]
  - Pulmonary oedema [None]
  - Aspiration [None]
